FAERS Safety Report 8785971 (Version 1)
Quarter: 2012Q4

REPORT INFORMATION
  Report Type: Spontaneous
  Country: GB (occurrence: None)
  Receive Date: 20120905
  Receipt Date: 20120905
  Transmission Date: 20130627
  Serious: Yes (Disabling)
  Sender: FDA-Public Use
  Company Number: FK201202535

PATIENT
  Age: 90 Year
  Sex: Male

DRUGS (2)
  1. FUROSEMIDE [Suspect]
     Route: 042
  2. FUROSEMIDE [Suspect]
     Dosage: 4mg/min intravenous (not otherwise specified)

REACTIONS (2)
  - Blindness [None]
  - Cataract [None]
